FAERS Safety Report 5476332-5 (Version None)
Quarter: 2007Q4

REPORT INFORMATION
  Report Type: 
  Country: None (occurrence: None)
  Receive Date: 20071003
  Receipt Date: 20070921
  Transmission Date: 20080405
  Serious: Yes (Other)
  Sender: FDA-Public Use
  Company Number: US-PFIZER INC-2007068563

PATIENT
  Sex: Female
  Weight: 52.272 kg

DRUGS (3)
  1. CHANTIX [Suspect]
     Indication: SMOKING CESSATION THERAPY
     Dates: start: 20070417, end: 20070806
  2. CHANTIX [Suspect]
     Indication: TOBACCO ABUSE
  3. XANAX [Concomitant]

REACTIONS (9)
  - AGITATION [None]
  - FEELING ABNORMAL [None]
  - FRUSTRATION [None]
  - HIGH DENSITY LIPOPROTEIN INCREASED [None]
  - IRRITABILITY [None]
  - LOW DENSITY LIPOPROTEIN INCREASED [None]
  - NAUSEA [None]
  - STRESS [None]
  - WEIGHT INCREASED [None]
